FAERS Safety Report 18170143 (Version 3)
Quarter: 2020Q4

REPORT INFORMATION
  Report Type: Spontaneous
  Country: US (occurrence: US)
  Receive Date: 20200819
  Receipt Date: 20201012
  Transmission Date: 20210113
  Serious: Yes (Other)
  Sender: FDA-Public Use
  Company Number: US-PFIZER INC-2020314902

PATIENT
  Age: 54 Year
  Sex: Female
  Weight: 57.15 kg

DRUGS (2)
  1. PREMARIN [Suspect]
     Active Substance: ESTROGENS, CONJUGATED
     Indication: DYSPAREUNIA
  2. PREMARIN [Suspect]
     Active Substance: ESTROGENS, CONJUGATED
     Indication: MENOPAUSE
     Dosage: UNK, 2X/WEEK (FILLED TO THE FIRST LITTLE LINE ON THE APPLICATOR, INSERTING VAGINALLY)
     Route: 067
     Dates: start: 2019, end: 202007

REACTIONS (2)
  - Device issue [Unknown]
  - Cystitis [Unknown]

NARRATIVE: CASE EVENT DATE: 202001
